FAERS Safety Report 23287493 (Version 1)
Quarter: 2023Q4

REPORT INFORMATION
  Report Type: Spontaneous
  Country: US (occurrence: US)
  Receive Date: 20231212
  Receipt Date: 20231212
  Transmission Date: 20240110
  Serious: Yes (Other)
  Sender: FDA-Public Use
  Company Number: US-MLMSERVICE-20231121-4676232-1

PATIENT

DRUGS (3)
  1. GENTAMICIN [Suspect]
     Active Substance: GENTAMICIN
     Indication: Graft infection
     Dosage: GENTAMICIN-ELUTING BEADS PLACED RETROPERITONEALLY
     Route: 065
  2. CALCIUM CHLORIDE [Concomitant]
     Active Substance: CALCIUM CHLORIDE
     Indication: Product used for unknown indication
     Dosage: 6 GRAM, OVER POSTOPERATIVE DAY (POD) 1
     Route: 042
  3. CALCIUM GLUCONATE [Concomitant]
     Active Substance: CALCIUM GLUCONATE
     Indication: Product used for unknown indication
     Dosage: 4 GRAM, OVER POSTOPERATIVE DAY (POD) 1
     Route: 065

REACTIONS (3)
  - Condition aggravated [Recovering/Resolving]
  - Hypercalcaemia [Recovering/Resolving]
  - Acute kidney injury [Recovering/Resolving]
